FAERS Safety Report 21555456 (Version 2)
Quarter: 2022Q4

REPORT INFORMATION
  Report Type: Spontaneous
  Country: US (occurrence: US)
  Receive Date: 20221104
  Receipt Date: 20221119
  Transmission Date: 20230113
  Serious: Yes (Hospitalization)
  Sender: FDA-Public Use
  Company Number: US-TEVA-2022-US-2822751

PATIENT
  Age: 25 Year
  Sex: Female

DRUGS (1)
  1. PAROXETINE [Suspect]
     Active Substance: PAROXETINE
     Indication: Suicide attempt
     Dosage: 2100 MG
     Route: 065

REACTIONS (6)
  - Long QT syndrome [Recovering/Resolving]
  - Syncope [Unknown]
  - Insomnia [Unknown]
  - Hallucination, auditory [Unknown]
  - Tremor [Unknown]
  - Intentional overdose [Unknown]
